FAERS Safety Report 12243841 (Version 2)
Quarter: 2016Q3

REPORT INFORMATION
  Report Type: Spontaneous
  Country: US (occurrence: US)
  Receive Date: 20160406
  Receipt Date: 20160701
  Transmission Date: 20161109
  Serious: Yes (Death, Hospitalization, Other)
  Sender: FDA-Public Use
  Company Number: US-PFIZER INC-2016181503

PATIENT
  Age: 72 Year
  Sex: Female

DRUGS (1)
  1. SUTENT [Suspect]
     Active Substance: SUNITINIB MALATE
     Indication: RENAL CANCER
     Dosage: 37.5 MG, 1X/DAY
     Dates: start: 200806, end: 200807

REACTIONS (2)
  - Renal cancer [Fatal]
  - Disease progression [Fatal]

NARRATIVE: CASE EVENT DATE: 200806
